FAERS Safety Report 11675537 (Version 2)
Quarter: 2015Q4

REPORT INFORMATION
  Report Type: Spontaneous
  Country: US (occurrence: US)
  Receive Date: 20151027
  Receipt Date: 20151104
  Transmission Date: 20160304
  Serious: No
  Sender: FDA-Public Use
  Company Number: US-ELI_LILLY_AND_COMPANY-US201006005942

PATIENT
  Sex: Female

DRUGS (5)
  1. FORTEO [Suspect]
     Active Substance: TERIPARATIDE
     Indication: OSTEOPOROSIS
     Dosage: 20 UG, DAILY (1/D)
     Route: 065
     Dates: start: 20100331, end: 20100606
  2. FORTEO [Suspect]
     Active Substance: TERIPARATIDE
     Dosage: 20 UG, QOD
     Route: 065
  3. FORTEO [Suspect]
     Active Substance: TERIPARATIDE
     Dosage: EVERY 3 DAYS
     Route: 065
     Dates: start: 20100607, end: 20100706
  4. FORTEO [Suspect]
     Active Substance: TERIPARATIDE
     Dosage: 20 UG, QD
  5. FORTEO [Suspect]
     Active Substance: TERIPARATIDE
     Dosage: 20 UG, QOD
     Route: 065
     Dates: start: 20100707

REACTIONS (21)
  - Nervousness [Unknown]
  - Injection site bruising [Unknown]
  - Drug prescribing error [Unknown]
  - Speech disorder [Unknown]
  - Depressed mood [Unknown]
  - Arthralgia [Not Recovered/Not Resolved]
  - Injection site haemorrhage [Unknown]
  - Toothache [Recovered/Resolved]
  - Weight decreased [Unknown]
  - Confusional state [Unknown]
  - Oral pain [Recovered/Resolved]
  - Feeling abnormal [Recovered/Resolved]
  - Fatigue [Unknown]
  - Clumsiness [Unknown]
  - Dizziness [Unknown]
  - Thinking abnormal [Unknown]
  - Headache [Recovering/Resolving]
  - Nausea [Unknown]
  - Pain in jaw [Recovered/Resolved]
  - Malaise [Unknown]
  - Disorientation [Unknown]
